FAERS Safety Report 4436361-7 (Version None)
Quarter: 2004Q3

REPORT INFORMATION
  Report Type: 
  Country: None (occurrence: None)
  Receive Date: 20040728
  Receipt Date: 20040126
  Transmission Date: 20050211
  Serious: Yes (Other)
  Sender: FDA-Public Use
  Company Number: 203935

PATIENT
  Age: 49 Year
  Sex: Male
  Weight: 106.6 kg

DRUGS (4)
  1. RITUXAN [Suspect]
     Indication: CHRONIC LYMPHOCYTIC LEUKAEMIA
     Dosage: 860 MG, 1/WEEK
  2. BENADRYL [Concomitant]
  3. PREDNISONE [Concomitant]
  4. TAGAMET [Concomitant]

REACTIONS (2)
  - CHEST PAIN [None]
  - FLUSHING [None]
